FAERS Safety Report 5390705-0 (Version None)
Quarter: 2007Q3

REPORT INFORMATION
  Report Type: 
  Country: None (occurrence: None)
  Receive Date: 20070716
  Receipt Date: 20070702
  Transmission Date: 20080115
  Serious: Yes (Life-Threatening, Hospitalization)
  Sender: FDA-Public Use
  Company Number: 100#08#2007-02481

PATIENT
  Age: 59 Year
  Sex: Female

DRUGS (3)
  1. ALPRAZOLAM [Suspect]
     Indication: ANXIETY
     Dosage: 0.5 MG/12H
     Route: 048
  2. PAROXETINE [Suspect]
     Indication: DRUG USE FOR UNKNOWN INDICATION
  3. DIPOTASSIUM CLORAZEPATE [Concomitant]

REACTIONS (5)
  - ANGIOEDEMA [None]
  - DYSPNOEA [None]
  - DYSTONIA [None]
  - SENSORY DISTURBANCE [None]
  - SWOLLEN TONGUE [None]
